FAERS Safety Report 4509589-5 (Version None)
Quarter: 2004Q4

REPORT INFORMATION
  Report Type: 
  Country: None (occurrence: None)
  Receive Date: 20041119
  Receipt Date: 20041101
  Transmission Date: 20050328
  Serious: Yes (Other)
  Sender: FDA-Public Use
  Company Number: USA041182739

PATIENT
  Sex: Male

DRUGS (3)
  1. PERMAX [Suspect]
  2. SINEMET [Concomitant]
  3. SINEMET CR [Concomitant]

REACTIONS (7)
  - ASTHENIA [None]
  - HALLUCINATION [None]
  - INSOMNIA [None]
  - LETHARGY [None]
  - LISTLESS [None]
  - NAUSEA [None]
  - VOMITING [None]
